FAERS Safety Report 7024047-4 (Version None)
Quarter: 2010Q4

REPORT INFORMATION
  Report Type: 
  Country: None (occurrence: None)
  Receive Date: 20101001
  Receipt Date: 20100923
  Transmission Date: 20110411
  Serious: Yes (Death, Other)
  Sender: FDA-Public Use
  Company Number: US-AMGEN-KDL419657

PATIENT
  Sex: Female
  Weight: 63.1 kg

DRUGS (2)
  1. PROCRIT [Suspect]
     Indication: ANAEMIA
  2. METOPROLOL TARTRATE [Concomitant]

REACTIONS (2)
  - DEATH [None]
  - HAEMOGLOBIN DECREASED [None]
